FAERS Safety Report 15281257 (Version 1)
Quarter: 2018Q3

REPORT INFORMATION
  Report Type: Spontaneous
  Country: DK (occurrence: DK)
  Receive Date: 20180815
  Receipt Date: 20180815
  Transmission Date: 20181010
  Serious: Yes (Death, Hospitalization, Other)
  Sender: FDA-Public Use
  Company Number: DK-SA-2018SA155291

PATIENT
  Age: 85 Year
  Sex: Male

DRUGS (11)
  1. DABIGATRAN [Suspect]
     Active Substance: DABIGATRAN
     Indication: ATRIAL FIBRILLATION
     Dosage: 110 MG, BID
  2. DABIGATRAN [Suspect]
     Active Substance: DABIGATRAN
     Indication: MYOCARDIAL ISCHAEMIA
  3. POTASSIUM CHLORIDE. [Concomitant]
     Active Substance: POTASSIUM CHLORIDE
     Dosage: 750 MG, BID
  4. CLOPIDOGREL BISULFATE. [Suspect]
     Active Substance: CLOPIDOGREL BISULFATE
     Indication: ATRIAL FIBRILLATION
     Dosage: 75 MG
  5. WARFARIN SODIUM. [Suspect]
     Active Substance: WARFARIN SODIUM
  6. HEPARIN [Concomitant]
     Active Substance: HEPARIN SODIUM
  7. ROSUVASTATIN. [Concomitant]
     Active Substance: ROSUVASTATIN
     Dosage: 5 MG, QD
  8. SPIRONOLACTONE. [Concomitant]
     Active Substance: SPIRONOLACTONE
     Dosage: 50 MG, BID
  9. CLOPIDOGREL BISULFATE. [Suspect]
     Active Substance: CLOPIDOGREL BISULFATE
     Indication: MYOCARDIAL ISCHAEMIA
  10. FUROSEMIDE. [Concomitant]
     Active Substance: FUROSEMIDE
     Dosage: 80 MG, BID
  11. METOPROLOL SUCCINATE. [Concomitant]
     Active Substance: METOPROLOL SUCCINATE
     Dosage: 50 MG, QD

REACTIONS (10)
  - Weight decreased [Unknown]
  - Sepsis [Fatal]
  - Circulatory collapse [Fatal]
  - Syncope [Unknown]
  - Intracardiac thrombus [Unknown]
  - Aortic stenosis [Unknown]
  - Drug ineffective [Unknown]
  - Dizziness [Unknown]
  - Cardiac failure [Unknown]
  - Drug resistance [Unknown]
